FAERS Safety Report 25753827 (Version 1)
Quarter: 2025Q3

REPORT INFORMATION
  Report Type: Report from Study
  Country: US (occurrence: US)
  Receive Date: 20250903
  Receipt Date: 20250903
  Transmission Date: 20251021
  Serious: No
  Sender: SUNOVION
  Company Number: US-SUMITOMO PHARMA SWITZERLAND GMBH-2025SPA010982

PATIENT
  Age: 70 Year
  Sex: Male

DRUGS (18)
  1. ORGOVYX [Suspect]
     Active Substance: RELUGOLIX
     Indication: Prostate cancer
     Route: 048
     Dates: start: 20250711, end: 20250711
  2. ORGOVYX [Suspect]
     Active Substance: RELUGOLIX
     Route: 048
  3. DEGARELIX [Concomitant]
     Active Substance: DEGARELIX
  4. PROAIR HFA [Concomitant]
     Active Substance: ALBUTEROL SULFATE
  5. ASPIRIN [Concomitant]
     Active Substance: ASPIRIN
  6. FERROUS SULFATE [Concomitant]
     Active Substance: FERROUS SULFATE
  7. GABAPENTIN [Concomitant]
     Active Substance: GABAPENTIN
  8. LISINOPRIL [Concomitant]
     Active Substance: LISINOPRIL
  9. PREDNISONE [Concomitant]
     Active Substance: PREDNISONE
  10. ASCORBIC ACID [Concomitant]
     Active Substance: ASCORBIC ACID
  11. CALCIUM ACETATE [Concomitant]
     Active Substance: CALCIUM ACETATE
  12. VITAMIN D3 [Concomitant]
     Active Substance: CHOLECALCIFEROL
  13. OMEPRAZOLE [Concomitant]
     Active Substance: OMEPRAZOLE
  14. CYANOCOBALAMIN [Concomitant]
     Active Substance: CYANOCOBALAMIN
  15. FOLIC ACID [Concomitant]
     Active Substance: FOLIC ACID
  16. ARNUITY ELLIPTA [Concomitant]
     Active Substance: FLUTICASONE FUROATE
  17. ELIQUIS [Concomitant]
     Active Substance: APIXABAN
  18. ABIRATERONE ACETATE [Concomitant]
     Active Substance: ABIRATERONE ACETATE

REACTIONS (4)
  - Dizziness [Unknown]
  - Abdominal discomfort [Unknown]
  - Asthenia [Unknown]
  - Constipation [Unknown]
